FAERS Safety Report 16980863 (Version 2)
Quarter: 2021Q3

REPORT INFORMATION
  Report Type: Spontaneous
  Country: US (occurrence: US)
  Receive Date: 20191031
  Receipt Date: 20210914
  Transmission Date: 20211014
  Serious: No
  Sender: FDA-Public Use
  Company Number: US-FARMAPROD-201907-1183

PATIENT
  Sex: Female

DRUGS (3)
  1. OXERVATE [Suspect]
     Active Substance: CENEGERMIN-BKBJ
     Indication: HYPOAESTHESIA EYE
     Route: 047
     Dates: start: 20190716, end: 20190903
  2. OXERVATE [Suspect]
     Active Substance: CENEGERMIN-BKBJ
     Indication: PUNCTATE KERATITIS
     Route: 047
     Dates: start: 20210223, end: 20210420
  3. OXERVATE [Suspect]
     Active Substance: CENEGERMIN-BKBJ
     Route: 047
     Dates: start: 20210504

REACTIONS (2)
  - Ocular hyperaemia [Unknown]
  - Intentional product misuse [Unknown]
